FAERS Safety Report 10972120 (Version 1)
Quarter: 2015Q1

REPORT INFORMATION
  Report Type: Spontaneous
  Country: US (occurrence: US)
  Receive Date: 20150331
  Receipt Date: 20150331
  Transmission Date: 20150721
  Serious: Yes (Hospitalization)
  Sender: FDA-Public Use
  Company Number: US-IMPAX LABORATORIES, INC-2015-IPXL-00325

PATIENT
  Age: 44 Year
  Sex: Male

DRUGS (6)
  1. LAMOTRIGINE ODT [Interacting]
     Active Substance: LAMOTRIGINE
     Dosage: 150 MG, 1 /DAY
     Route: 065
  2. LAMOTRIGINE ODT [Suspect]
     Active Substance: LAMOTRIGINE
     Indication: GENERALISED TONIC-CLONIC SEIZURE
     Dosage: 25 MG, 1 /DAY
     Route: 065
  3. LAMOTRIGINE ODT [Interacting]
     Active Substance: LAMOTRIGINE
     Dosage: 50 MG, 1 /DAY
     Route: 065
  4. LAMOTRIGINE ODT [Interacting]
     Active Substance: LAMOTRIGINE
     Dosage: 100 MG, 1 /DAY
     Route: 065
  5. GINSENG [Interacting]
     Active Substance: ASIAN GINSENG
     Indication: PRODUCT USED FOR UNKNOWN INDICATION
     Dosage: UNK
     Route: 065
  6. SILDENAFIL. [Concomitant]
     Active Substance: SILDENAFIL
     Indication: PRODUCT USED FOR UNKNOWN INDICATION
     Dosage: UNK, PRN
     Route: 065

REACTIONS (3)
  - Drug reaction with eosinophilia and systemic symptoms [Not Recovered/Not Resolved]
  - Drug interaction [Unknown]
  - Prostatitis [None]
